FAERS Safety Report 8819504 (Version 2)
Quarter: 2013Q1

REPORT INFORMATION
  Report Type: Spontaneous
  Country: US (occurrence: US)
  Receive Date: 20120930
  Receipt Date: 20130208
  Transmission Date: 20140127
  Serious: No
  Sender: FDA-Public Use
  Company Number: US-009507513-1209USA011312

PATIENT
  Sex: Male

DRUGS (6)
  1. VICTRELIS [Suspect]
     Indication: HEPATITIS C
     Dosage: 4 DF, Q8H
     Route: 048
     Dates: start: 2012
  2. PEGASYS [Suspect]
     Indication: HEPATITIS C
     Dosage: UNK
     Dates: start: 201207
  3. RIBASPHERE [Suspect]
     Indication: HEPATITIS C
     Dosage: UNK
     Dates: start: 201207
  4. FLUOCINONIDE [Concomitant]
  5. TRIAMCINOLONE ACETONIDE [Concomitant]
  6. CANASA [Concomitant]

REACTIONS (3)
  - Pain [Not Recovered/Not Resolved]
  - Dysgeusia [Not Recovered/Not Resolved]
  - Fatigue [Not Recovered/Not Resolved]
